FAERS Safety Report 12161649 (Version 1)
Quarter: 2016Q1

REPORT INFORMATION
  Report Type: Spontaneous
  Country: US (occurrence: US)
  Receive Date: 20160309
  Receipt Date: 20160309
  Transmission Date: 20160526
  Serious: Yes (Other)
  Sender: FDA-Public Use
  Company Number: US-BEH-2016059440

PATIENT
  Age: 64 Year
  Sex: Female
  Weight: 120 kg

DRUGS (18)
  1. CARDIZEM [Concomitant]
     Active Substance: DILTIAZEM HYDROCHLORIDE
  2. LIDOCAINE/PRILOCAINE [Concomitant]
  3. TYLENOL [Concomitant]
     Active Substance: ACETAMINOPHEN
  4. LISINOPRIL. [Concomitant]
     Active Substance: LISINOPRIL
  5. EPIPEN [Concomitant]
     Active Substance: EPINEPHRINE
  6. AZITHROMYCIN ANHYDROUS. [Concomitant]
     Active Substance: AZITHROMYCIN ANHYDROUS
  7. DIPHENHYDRAMINE. [Concomitant]
     Active Substance: DIPHENHYDRAMINE
  8. HYDROCODONE [Concomitant]
     Active Substance: HYDROCODONE
  9. HIZENTRA [Suspect]
     Active Substance: HUMAN IMMUNOGLOBULIN G
     Indication: IMMUNODEFICIENCY COMMON VARIABLE
     Route: 058
     Dates: start: 20130313
  10. ADVAIR HFA [Concomitant]
     Active Substance: FLUTICASONE PROPIONATE\SALMETEROL XINAFOATE
  11. ATROVENT [Concomitant]
     Active Substance: IPRATROPIUM BROMIDE
  12. DILTIAZEM [Concomitant]
     Active Substance: DILTIAZEM
  13. PROVENTIL [Concomitant]
     Active Substance: ALBUTEROL
  14. SINGULAIR [Concomitant]
     Active Substance: MONTELUKAST SODIUM
  15. LIPITOR [Concomitant]
     Active Substance: ATORVASTATIN CALCIUM
  16. ACETAMINOPHEN. [Concomitant]
     Active Substance: ACETAMINOPHEN
  17. ALBUTEROL. [Concomitant]
     Active Substance: ALBUTEROL
  18. ACTOPLUS MET [Concomitant]
     Active Substance: METFORMIN HYDROCHLORIDE\PIOGLITAZONE HYDROCHLORIDE

REACTIONS (1)
  - Lung infection [Unknown]

NARRATIVE: CASE EVENT DATE: 201602
